FAERS Safety Report 5364747-5 (Version None)
Quarter: 2007Q2

REPORT INFORMATION
  Report Type: 
  Country: None (occurrence: None)
  Receive Date: 20070611
  Receipt Date: 20061205
  Transmission Date: 20071010
  Serious: Yes (Other)
  Sender: FDA-Public Use
  Company Number: 2006121687

PATIENT
  Age: 57 Year
  Sex: Female

DRUGS (5)
  1. ALDACTONE [Suspect]
     Indication: HYPERTENSION
     Dosage: 25 MG (25 MG), ORAL
     Route: 048
     Dates: start: 20031009
  2. REBIF [Concomitant]
  3. MICARDIS [Concomitant]
  4. CARDIZEM [Concomitant]
  5. NEXIUM [Concomitant]

REACTIONS (2)
  - CONFUSIONAL STATE [None]
  - HYPONATRAEMIA [None]
